FAERS Safety Report 6890450-6 (Version None)
Quarter: 2010Q3

REPORT INFORMATION
  Report Type: 
  Country: None (occurrence: None)
  Receive Date: 20100731
  Receipt Date: 20081101
  Transmission Date: 20110219
  Serious: Yes (Other)
  Sender: FDA-Public Use
  Company Number: US-PFIZER INC-2008087431

PATIENT
  Sex: Female

DRUGS (4)
  1. LIPITOR [Suspect]
     Route: 048
     Dates: start: 20081001
  2. DILANTIN [Concomitant]
  3. ATENOLOL [Concomitant]
  4. ESTROGENS SOL/INJ [Concomitant]

REACTIONS (2)
  - AMNESIA [None]
  - NASAL CONGESTION [None]
